FAERS Safety Report 17104580 (Version 1)
Quarter: 2019Q4

REPORT INFORMATION
  Report Type: Spontaneous
  Country: US (occurrence: US)
  Receive Date: 20191203
  Receipt Date: 20191203
  Transmission Date: 20200122
  Serious: No
  Sender: FDA-Public Use
  Company Number: US-UCBSA-2018005785

PATIENT
  Sex: Female

DRUGS (20)
  1. BUPROPION. [Concomitant]
     Active Substance: BUPROPION
     Indication: BIPOLAR DISORDER
     Dosage: 150 MG, 3X/DAY (TID)
  2. TRAZODONE [Concomitant]
     Active Substance: TRAZODONE HYDROCHLORIDE
     Indication: BIPOLAR DISORDER
  3. MIRTAZAPINE. [Concomitant]
     Active Substance: MIRTAZAPINE
     Indication: INSOMNIA
  4. DEPAKOTE [Concomitant]
     Active Substance: DIVALPROEX SODIUM
     Indication: EPILEPSY
     Dosage: 250 MG, 3X/DAY (TID)
  5. IRON [Concomitant]
     Active Substance: IRON
     Indication: ANAEMIA
  6. ASPIRIN. [Concomitant]
     Active Substance: ASPIRIN
     Indication: CHRONIC OBSTRUCTIVE PULMONARY DISEASE
  7. BRIVARACETAM [Concomitant]
     Active Substance: BRIVARACETAM
     Indication: SEIZURE
  8. PHENYTOIN. [Concomitant]
     Active Substance: PHENYTOIN
     Indication: EPILEPSY
     Dosage: 100 MG, 3X/DAY (TID)
  9. DEPAKOTE [Concomitant]
     Active Substance: DIVALPROEX SODIUM
     Indication: BIPOLAR DISORDER
  10. BUPROPION. [Concomitant]
     Active Substance: BUPROPION
     Indication: DEPRESSION
  11. MIRTAZAPINE. [Concomitant]
     Active Substance: MIRTAZAPINE
     Indication: MAJOR DEPRESSION
  12. ASPIRIN. [Concomitant]
     Active Substance: ASPIRIN
     Indication: CARDIAC DISORDER
  13. PROVENTIL [Concomitant]
     Active Substance: ALBUTEROL
     Indication: ASTHMA
  14. SPIRIVA [Concomitant]
     Active Substance: TIOTROPIUM BROMIDE MONOHYDRATE
     Indication: ASTHMA
  15. MIRTAZAPINE. [Concomitant]
     Active Substance: MIRTAZAPINE
     Indication: BIPOLAR DISORDER
  16. TRAZODONE [Concomitant]
     Active Substance: TRAZODONE HYDROCHLORIDE
     Indication: INSOMNIA
     Dosage: 150 MG, ONCE DAILY (QD)
  17. PROVENTIL [Concomitant]
     Active Substance: ALBUTEROL
     Indication: CHRONIC OBSTRUCTIVE PULMONARY DISEASE
  18. LEVETIRACETAM. [Suspect]
     Active Substance: LEVETIRACETAM
     Indication: EPILEPSY
     Dosage: 500 MG, 3X/DAY (TID)
  19. TRAZODONE [Concomitant]
     Active Substance: TRAZODONE HYDROCHLORIDE
     Indication: MAJOR DEPRESSION
  20. SPIRIVA [Concomitant]
     Active Substance: TIOTROPIUM BROMIDE MONOHYDRATE
     Indication: CHRONIC OBSTRUCTIVE PULMONARY DISEASE

REACTIONS (1)
  - No adverse event [Unknown]
